FAERS Safety Report 6322036-6 (Version None)
Quarter: 2009Q3

REPORT INFORMATION
  Report Type: 
  Country: None (occurrence: None)
  Receive Date: 20090824
  Receipt Date: 20090817
  Transmission Date: 20100115
  Serious: Yes (Death)
  Sender: FDA-Public Use
  Company Number: CO-PFIZER INC-2009255969

PATIENT
  Age: 12 Year

DRUGS (2)
  1. SILDENAFIL CITRATE [Suspect]
     Indication: PULMONARY HYPERTENSION
     Dosage: 40 MG, 3X/DAY
     Route: 048
     Dates: start: 20070913, end: 20090814
  2. BENZATHINE BENZYLPENICILLIN [Concomitant]
     Dosage: UNK
     Route: 021
     Dates: start: 20060620, end: 20090814

REACTIONS (1)
  - DEATH [None]
